FAERS Safety Report 8963838 (Version 3)
Quarter: 2013Q1

REPORT INFORMATION
  Report Type: Spontaneous
  Country: US (occurrence: US)
  Receive Date: 20121214
  Receipt Date: 20130201
  Transmission Date: 20140127
  Serious: No
  Sender: FDA-Public Use
  Company Number: US-PFIZER INC-2012312754

PATIENT
  Age: 65 Year
  Sex: Female
  Weight: 59 kg

DRUGS (5)
  1. PREMARIN [Suspect]
     Indication: MENOPAUSAL SYMPTOMS
     Dosage: UNK, THREE TIMES IN A MONTH
     Route: 067
     Dates: start: 2009
  2. PREMARIN [Suspect]
     Indication: ATROPHIC VULVOVAGINITIS
     Dosage: 0.625 MG/G, 1-2 G, QHS FOR 1-2 WEEKS
     Route: 067
  3. PREMARIN [Suspect]
     Dosage: THEN 1 G 1-3 X A WEEK PRN
     Route: 067
     Dates: end: 20121209
  4. ADVAIR [Concomitant]
     Indication: ASTHMA
     Dosage: 250-50 PUFF BID
     Route: 045
  5. ALBUTEROL [Concomitant]
     Dosage: UNK

REACTIONS (3)
  - Vulvovaginal burning sensation [Not Recovered/Not Resolved]
  - Vulvovaginal rash [Recovered/Resolved]
  - Vulvovaginal pruritus [Not Recovered/Not Resolved]
